FAERS Safety Report 7091581-0 (Version None)
Quarter: 2010Q4

REPORT INFORMATION
  Report Type: 
  Country: None (occurrence: None)
  Receive Date: 20101109
  Receipt Date: 20101028
  Transmission Date: 20110411
  Serious: Yes (Other)
  Sender: FDA-Public Use
  Company Number: IT-WATSON-2010-14431

PATIENT
  Age: 3 Year
  Sex: Female

DRUGS (2)
  1. TRIHEXYPHENIDYL HYDROCHLORIDE [Suspect]
     Indication: DYSTONIA
     Dosage: 1/2 MG ONCE DAILY, GRADUALLY INCREASING TO 1 MG TWICE DAILY
  2. VALPROIC ACID [Suspect]
     Indication: EPILEPSY
     Dosage: UNK

REACTIONS (3)
  - ANTICONVULSANT DRUG LEVEL BELOW THERAPEUTIC [None]
  - CONVULSION [None]
  - DRUG INTERACTION [None]
